FAERS Safety Report 7927010-1 (Version None)
Quarter: 2011Q4

REPORT INFORMATION
  Report Type: 
  Country: None (occurrence: None)
  Receive Date: 20111118
  Receipt Date: 20111110
  Transmission Date: 20120403
  Serious: Yes (Life-Threatening, Hospitalization)
  Sender: FDA-Public Use
  Company Number: JP-JNJFOC-20110908254

PATIENT
  Sex: Male
  Weight: 62 kg

DRUGS (12)
  1. REMICADE [Suspect]
     Route: 042
     Dates: start: 20061122
  2. METHOTREXATE [Concomitant]
     Route: 048
     Dates: start: 20021219, end: 20110728
  3. REMICADE [Suspect]
     Indication: RHEUMATOID ARTHRITIS
     Route: 042
  4. MUCOSTA [Concomitant]
     Route: 048
  5. DICLOFENAC SODIUM [Concomitant]
     Route: 054
  6. PREDNISOLONE [Concomitant]
     Route: 048
  7. FOLIC ACID [Concomitant]
     Route: 048
  8. REMICADE [Suspect]
     Route: 042
     Dates: start: 20100423
  9. REMICADE [Suspect]
     Route: 042
     Dates: start: 20110506
  10. LOXONIN [Concomitant]
     Route: 048
  11. REMICADE [Suspect]
     Route: 042
     Dates: start: 20040301
  12. FAMOTIDINE [Concomitant]
     Route: 048

REACTIONS (1)
  - PERITONEAL TUBERCULOSIS [None]
